FAERS Safety Report 10142767 (Version 2)
Quarter: 2014Q3

REPORT INFORMATION
  Report Type: Spontaneous
  Country: IT (occurrence: None)
  Receive Date: 20140428
  Receipt Date: 20140702
  Transmission Date: 20150326
  Serious: Yes (Hospitalization)
  Sender: FDA-Public Use
  Company Number: DEP-02028-2014

PATIENT
  Age: 54 Year
  Sex: Female

DRUGS (6)
  1. EUTIROX [Concomitant]
     Active Substance: LEVOTHYROXINE SODIUM
  2. DEPAKIN [Concomitant]
     Active Substance: VALPROATE SODIUM
  3. CIPRALEX /01588502/ [Concomitant]
  4. TRANQUIRIT [Concomitant]
     Active Substance: DIAZEPAM
  5. QUETIAPINE FUMARATE. [Concomitant]
     Active Substance: QUETIAPINE FUMARATE
  6. PECFENT [Suspect]
     Active Substance: FENTANYL CITRATE
     Indication: HEADACHE
     Dosage: (DF NASAL) 1 BOTTLE NASAL
     Route: 045
     Dates: start: 20140307, end: 20140307

REACTIONS (5)
  - Somnolence [None]
  - Asthenia [None]
  - Vertigo [None]
  - Nausea [None]
  - Off label use [None]

NARRATIVE: CASE EVENT DATE: 20140307
